FAERS Safety Report 6401728-4 (Version None)
Quarter: 2009Q4

REPORT INFORMATION
  Report Type: 
  Country: None (occurrence: None)
  Receive Date: 20091015
  Receipt Date: 20091012
  Transmission Date: 20100525
  Serious: Yes (Hospitalization)
  Sender: FDA-Public Use
  Company Number: FR-WYE-G04601809

PATIENT
  Sex: Female
  Weight: 19 kg

DRUGS (2)
  1. ADVIL [Suspect]
     Dosage: 4 DOSE-FORM TOTAL DAILY
     Route: 048
     Dates: start: 20090925, end: 20090928
  2. TAMIFLU [Concomitant]
     Dosage: ONE SINGLE DOSE OF 45 MG
     Route: 048
     Dates: start: 20090927, end: 20090927

REACTIONS (8)
  - BLOOD CREATININE INCREASED [None]
  - BLOOD UREA INCREASED [None]
  - CONDITION AGGRAVATED [None]
  - DEHYDRATION [None]
  - DIET REFUSAL [None]
  - DRUG INEFFECTIVE [None]
  - PNEUMONIA PNEUMOCOCCAL [None]
  - RENAL IMPAIRMENT [None]
